FAERS Safety Report 6015159-2 (Version None)
Quarter: 2008Q4

REPORT INFORMATION
  Report Type: 
  Country: None (occurrence: None)
  Receive Date: 20081219
  Receipt Date: 20081219
  Transmission Date: 20090506
  Serious: No
  Sender: FDA-Public Use
  Company Number: None

PATIENT
  Sex: Female
  Weight: 12.2471 kg

DRUGS (1)
  1. SULFATRIM [Suspect]
     Indication: VESICOURETERIC REFLUX
     Dosage: 1/2 TEASPOON ONCE A DAY PO
     Route: 048

REACTIONS (2)
  - DRUG DISPENSING ERROR [None]
  - MEDICATION ERROR [None]
